FAERS Safety Report 6261121-4 (Version None)
Quarter: 2009Q3

REPORT INFORMATION
  Report Type: 
  Country: None (occurrence: None)
  Receive Date: 20090709
  Receipt Date: 20081217
  Transmission Date: 20100115
  Serious: No
  Sender: FDA-Public Use
  Company Number: US-KINGPHARMUSA00001-K200801429

PATIENT
  Sex: Male

DRUGS (2)
  1. LEVOXYL [Suspect]
     Indication: THYROIDECTOMY
     Dosage: 175 MCG, UNK
     Route: 048
     Dates: start: 20080401
  2. LEVOXYL [Suspect]
     Dosage: 200 MCG, UNK
     Dates: end: 20080401

REACTIONS (1)
  - BLOOD THYROID STIMULATING HORMONE INCREASED [None]
